FAERS Safety Report 9234371 (Version 1)
Quarter: 2013Q2

REPORT INFORMATION
  Report Type: Report from Study
  Country: US (occurrence: US)
  Receive Date: 20130416
  Receipt Date: 20130416
  Transmission Date: 20140414
  Serious: Yes (Other)
  Sender: FDA-Public Use
  Company Number: US-ABBOTT-13P-163-1074021-00

PATIENT
  Sex: Male
  Weight: 77.18 kg

DRUGS (10)
  1. HUMIRA [Suspect]
     Indication: CROHN^S DISEASE
     Route: 058
     Dates: start: 2008, end: 201201
  2. ASACOL [Concomitant]
     Indication: CROHN^S DISEASE
  3. TOPROL [Concomitant]
     Indication: HYPERTENSION
  4. AMLODIPINE [Concomitant]
     Indication: HYPERTENSION
  5. LIPITOR [Concomitant]
     Indication: BLOOD CHOLESTEROL INCREASED
  6. ALIGN [Concomitant]
     Indication: CROHN^S DISEASE
  7. XIFAXAN [Concomitant]
     Indication: CROHN^S DISEASE
     Dosage: 9 TABLETS DAILY
  8. FOLIC ACID [Concomitant]
     Indication: VITAMIN SUPPLEMENTATION
  9. PRILOSEC [Concomitant]
     Indication: GASTROOESOPHAGEAL REFLUX DISEASE
  10. CALCIUM [Concomitant]
     Indication: OSTEOPOROSIS

REACTIONS (3)
  - Glaucoma [Not Recovered/Not Resolved]
  - Lupus-like syndrome [Unknown]
  - Fatigue [Not Recovered/Not Resolved]
